FAERS Safety Report 18098946 (Version 1)
Quarter: 2020Q3

REPORT INFORMATION
  Report Type: Spontaneous
  Country: GB (occurrence: GB)
  Receive Date: 20200731
  Receipt Date: 20200731
  Transmission Date: 20201103
  Serious: Yes (Other)
  Sender: FDA-Public Use
  Company Number: GB-TEVA-2020-GB-1807091

PATIENT
  Age: 94 Year
  Sex: Female
  Weight: 70 kg

DRUGS (22)
  1. CALCI?D [Concomitant]
     Active Substance: CALCIUM CARBONATE\CHOLECALCIFEROL
     Dosage: 1 DOSAGE FORM
     Dates: start: 20200330
  2. PARACETAMOL [Concomitant]
     Active Substance: ACETAMINOPHEN
     Dosage: TAKE ONE OR TWO UP TO 4 TIMES A DAY ...
     Dates: start: 20200611, end: 20200623
  3. RANITIDINE. [Concomitant]
     Active Substance: RANITIDINE
     Dosage: 2 DOSAGE FORMS
     Dates: start: 20200330, end: 20200619
  4. OPTIVE [Concomitant]
     Active Substance: CARBOXYMETHYLCELLULOSE SODIUM\GLYCERIN
     Dosage: APPLY TO EYE UP TO 4 TIMES A DAY, 1 DOSAGE FORMS
     Route: 047
     Dates: start: 20200328
  5. OMEPRAZOLE. [Concomitant]
     Active Substance: OMEPRAZOLE
     Dosage: 1 DOSAGE FORM
     Dates: start: 20200512
  6. CLOBETASONE BUTYRATE [Concomitant]
     Active Substance: CLOBETASONE BUTYRATE
     Dosage: APPLY ONCE OR TWICE A DAY., 1DOSAGE FORM
     Dates: start: 20200416, end: 20200514
  7. ACIDEX [Concomitant]
     Active Substance: CALCIUM CARBONATE\SODIUM ALGINATE\SODIUM BICARBONATE
     Dosage: 5ML ? 10ML 4 TIMES/DAY
     Dates: start: 20200328
  8. CODEINE PHOSPHATE [Concomitant]
     Active Substance: CODEINE PHOSPHATE
     Dosage: 4 DOSAGE FORMS DAILY;
     Dates: start: 20200611, end: 20200618
  9. AQUEOUS CREAM [Concomitant]
     Dosage: APPLY GENEROUSLY TO THE AFFECTED AREA THREE TIM...
     Dates: start: 20200630
  10. BISACODYL. [Concomitant]
     Active Substance: BISACODYL
     Indication: CONSTIPATION
     Dosage: TAKE ONE OR TWO AT NIGHT
     Dates: start: 20200512, end: 20200609
  11. TIMOLOL. [Concomitant]
     Active Substance: TIMOLOL
     Dosage: ONE DROP INTO BOTH EYES AT NIGHT
     Route: 047
     Dates: start: 20200330
  12. LOSARTAN. [Concomitant]
     Active Substance: LOSARTAN
     Dosage: 1 DOSAGE FORM
     Dates: start: 20200330
  13. LAXIDO [Concomitant]
     Active Substance: POLYETHYLENE GLYCOL 3350\POTASSIUM CHLORIDE\SODIUM BICARBONATE\SODIUM CHLORIDE
     Dosage: 1 DOSAGE FORMS, UP TO TWICE DAILY
     Dates: start: 20200330
  14. CLARITHROMYCIN. [Suspect]
     Active Substance: CLARITHROMYCIN
     Dosage: 500 MG
     Dates: start: 20200706
  15. BRINZOLAMIDE [Concomitant]
     Active Substance: BRINZOLAMIDE
     Dosage: 1 DROP INTO EACH EYE, 4 GTT
     Route: 047
     Dates: start: 20200330
  16. CLOBETASOL PROPIONATE. [Concomitant]
     Active Substance: CLOBETASOL PROPIONATE
     Dosage: APPLY THINLY 1?2 TIMES/DAY, 1 DOSAGE FORM
     Dates: start: 20200504, end: 20200601
  17. FUROSEMIDE. [Concomitant]
     Active Substance: FUROSEMIDE
     Dosage: 1 DOSAGE FORMS DAILY; EACH MORNING
     Dates: start: 20200330
  18. FENBID [Concomitant]
     Active Substance: IBUPROFEN
     Dosage: APPLY, 3 DOSAGE FORMS
     Dates: start: 20200707
  19. HYDROCORTISONE. [Concomitant]
     Active Substance: HYDROCORTISONE
     Dosage: APPLY, 2 DOSAGE FORMS
     Dates: start: 20200604, end: 20200702
  20. BETNOVATE [Concomitant]
     Active Substance: BETAMETHASONE
     Dosage: APPLY ONCE OR TWICE A DAY.
     Dates: start: 20200706
  21. ZEROBASE [Concomitant]
     Active Substance: MINERAL OIL\PARAFFIN
     Dosage: USE AS DIRECTED
     Dates: start: 20200413, end: 20200513
  22. CETIRIZINE [Concomitant]
     Active Substance: CETIRIZINE HYDROCHLORIDE
     Dosage: 1 DOSAGE FORM
     Dates: start: 20200604, end: 20200704

REACTIONS (1)
  - Urticaria [Not Recovered/Not Resolved]

NARRATIVE: CASE EVENT DATE: 20200708
